FAERS Safety Report 6230255-2 (Version None)
Quarter: 2009Q2

REPORT INFORMATION
  Report Type: 
  Country: None (occurrence: None)
  Receive Date: 20090615
  Receipt Date: 20090605
  Transmission Date: 20091009
  Serious: Yes (Other)
  Sender: FDA-Public Use
  Company Number: US-AMGEN-QUU348561

PATIENT
  Sex: Female
  Weight: 89 kg

DRUGS (2)
  1. ENBREL [Suspect]
     Indication: RHEUMATOID ARTHRITIS
     Route: 058
     Dates: start: 20030301, end: 20080901
  2. METHOTREXATE [Concomitant]

REACTIONS (21)
  - ARTHRITIS [None]
  - BLOOD PRESSURE INCREASED [None]
  - CONTUSION [None]
  - DRY EYE [None]
  - FALL [None]
  - FATIGUE [None]
  - GASTROOESOPHAGEAL REFLUX DISEASE [None]
  - HAND DEFORMITY [None]
  - JOINT STIFFNESS [None]
  - LATENT TUBERCULOSIS [None]
  - MALAISE [None]
  - OEDEMA PERIPHERAL [None]
  - OSTEOARTHRITIS [None]
  - OSTEOPOROSIS [None]
  - PAIN IN EXTREMITY [None]
  - PULMONARY GRANULOMA [None]
  - RASH [None]
  - RESPIRATORY DISORDER [None]
  - RHEUMATOID ARTHRITIS [None]
  - ROTATOR CUFF SYNDROME [None]
  - SPINAL OSTEOARTHRITIS [None]
